FAERS Safety Report 6169450-X (Version None)
Quarter: 2009Q2

REPORT INFORMATION
  Report Type: 
  Country: None (occurrence: None)
  Receive Date: 20090428
  Receipt Date: 20090415
  Transmission Date: 20091009
  Serious: Yes (Other)
  Sender: FDA-Public Use
  Company Number: PHHY2009DE14834

PATIENT
  Sex: Male
  Weight: 82 kg

DRUGS (2)
  1. CGP 57148B T35717+ [Suspect]
     Indication: CHRONIC MYELOID LEUKAEMIA
     Dosage: 400 MG, QD
     Route: 048
     Dates: start: 20060815, end: 20070615
  2. DASATINIB [Concomitant]
     Dosage: UNK
     Dates: start: 20070715, end: 20080410

REACTIONS (4)
  - DRUG INTOLERANCE [None]
  - HAEMATOTOXICITY [None]
  - MOUTH ULCERATION [None]
  - THROMBOCYTOPENIA [None]
